FAERS Safety Report 9523143 (Version 1)
Quarter: 2013Q3

REPORT INFORMATION
  Report Type: Spontaneous
  Country: IT (occurrence: IT)
  Receive Date: 20130913
  Receipt Date: 20130913
  Transmission Date: 20140515
  Serious: Yes (Other)
  Sender: FDA-Public Use
  Company Number: IT-JNJFOC-20130904789

PATIENT
  Sex: Male

DRUGS (13)
  1. DOXORUBICIN [Suspect]
     Indication: T-CELL LYMPHOMA
     Dosage: AT DAY 1
     Route: 042
  2. DOXORUBICIN [Suspect]
     Indication: MYCOSIS FUNGOIDES
     Dosage: AT DAY 1
     Route: 042
  3. CYCLOPHOSPHAMIDE [Suspect]
     Indication: T-CELL LYMPHOMA
     Route: 065
  4. CYCLOPHOSPHAMIDE [Suspect]
     Indication: MYCOSIS FUNGOIDES
     Route: 065
  5. VINCRISTINE [Suspect]
     Indication: T-CELL LYMPHOMA
     Dosage: AT DAY 1
     Route: 065
  6. VINCRISTINE [Suspect]
     Indication: MYCOSIS FUNGOIDES
     Dosage: AT DAY 1
     Route: 065
  7. ETOPOSIDE [Suspect]
     Indication: T-CELL LYMPHOMA
     Dosage: DAY 1 TO DAY 3
     Route: 065
  8. ETOPOSIDE [Suspect]
     Indication: MYCOSIS FUNGOIDES
     Dosage: DAY 1 TO DAY 3
     Route: 065
  9. PREDNISONE [Suspect]
     Indication: T-CELL LYMPHOMA
     Route: 065
  10. PREDNISONE [Suspect]
     Indication: MYCOSIS FUNGOIDES
     Route: 065
  11. ALEMTUZUMAB [Suspect]
     Indication: T-CELL LYMPHOMA
     Dosage: FIRST DAY OF CHEMOTHERAPY
     Route: 058
  12. ALEMTUZUMAB [Suspect]
     Indication: MYCOSIS FUNGOIDES
     Dosage: FIRST DAY OF CHEMOTHERAPY
     Route: 058
  13. GRANULOCYTE COLONY STIMULATING FACTOR [Concomitant]
     Indication: PRODUCT USED FOR UNKNOWN INDICATION
     Route: 065

REACTIONS (6)
  - Cytomegalovirus infection [Unknown]
  - Neutropenia [Unknown]
  - Neutropenia [Unknown]
  - Skin exfoliation [Unknown]
  - Febrile neutropenia [Unknown]
  - Condition aggravated [Unknown]
